FAERS Safety Report 6511400-8 (Version None)
Quarter: 2009Q4

REPORT INFORMATION
  Report Type: 
  Country: None (occurrence: None)
  Receive Date: 20091222
  Receipt Date: 20090310
  Transmission Date: 20100525
  Serious: No
  Sender: FDA-Public Use
  Company Number: CO-ASTRAZENECA-2009UW06405

PATIENT
  Age: 59 Year
  Sex: Female
  Weight: 50 kg

DRUGS (3)
  1. CRESTOR [Suspect]
     Indication: DYSLIPIDAEMIA
     Route: 048
     Dates: start: 20081219, end: 20090126
  2. ENALAPRIL MALEATE [Concomitant]
     Route: 048
     Dates: start: 20030101
  3. LEVOTHYROXINE SODIUM [Concomitant]
     Route: 048
     Dates: start: 20030101

REACTIONS (3)
  - DIZZINESS [None]
  - ILL-DEFINED DISORDER [None]
  - PRURITUS [None]
